FAERS Safety Report 14937169 (Version 2)
Quarter: 2019Q4

REPORT INFORMATION
  Report Type: Spontaneous
  Country: US (occurrence: US)
  Receive Date: 20180525
  Receipt Date: 20191108
  Transmission Date: 20200122
  Serious: Yes (Other)
  Sender: FDA-Public Use
  Company Number: US-JNJFOC-20180516695

PATIENT
  Sex: Female

DRUGS (2)
  1. DIPHENHYDRAMINE HYDROCHLORIDE. [Suspect]
     Active Substance: DIPHENHYDRAMINE HYDROCHLORIDE
     Indication: SLEEP DISORDER THERAPY
     Route: 065
  2. DIPHENHYDRAMINE HYDROCHLORIDE. [Suspect]
     Active Substance: DIPHENHYDRAMINE HYDROCHLORIDE
     Indication: MULTIPLE ALLERGIES

REACTIONS (3)
  - Coma [Recovered/Resolved]
  - Product use in unapproved indication [Unknown]
  - Drug ineffective [Unknown]
